FAERS Safety Report 13549608 (Version 4)
Quarter: 2017Q4

REPORT INFORMATION
  Report Type: Report from Study
  Country: JP (occurrence: JP)
  Receive Date: 20170516
  Receipt Date: 20171006
  Transmission Date: 20180320
  Serious: Yes (Death, Other)
  Sender: FDA-Public Use
  Company Number: PHJP2017JP015872

PATIENT
  Sex: Female
  Weight: 42.7 kg

DRUGS (2)
  1. CERTICAN [Suspect]
     Active Substance: EVEROLIMUS
     Indication: RENAL TRANSPLANT
     Dosage: 0.5 MG, QD
     Route: 048
     Dates: start: 20151119
  2. CERTICAN [Suspect]
     Active Substance: EVEROLIMUS
     Indication: POST TRANSPLANT LYMPHOPROLIFERATIVE DISORDER

REACTIONS (3)
  - Post transplant lymphoproliferative disorder [Fatal]
  - Pneumonia aspiration [Unknown]
  - Product use in unapproved indication [Unknown]
